FAERS Safety Report 25941206 (Version 1)
Quarter: 2025Q4

REPORT INFORMATION
  Report Type: Spontaneous
  Country: US (occurrence: None)
  Receive Date: 20251019
  Receipt Date: 20251019
  Transmission Date: 20260117
  Serious: Yes (Other)
  Sender: FDA-CTU
  Company Number: None

PATIENT
  Age: 45 Year
  Sex: Female
  Weight: 69.75 kg

DRUGS (1)
  1. QELBREE [Suspect]
     Active Substance: VILOXAZINE HYDROCHLORIDE
     Indication: Attention deficit hyperactivity disorder
     Dates: start: 20250915, end: 20251019

REACTIONS (6)
  - Migraine [None]
  - Vomiting [None]
  - Tremor [None]
  - Nausea [None]
  - Headache [None]
  - Withdrawal syndrome [None]

NARRATIVE: CASE EVENT DATE: 20251010
